FAERS Safety Report 4323876-5 (Version None)
Quarter: 2004Q1

REPORT INFORMATION
  Report Type: 
  Country: None (occurrence: None)
  Receive Date: 20040326
  Receipt Date: 20030827
  Transmission Date: 20041129
  Serious: No
  Sender: FDA-Public Use
  Company Number: US-GLAXOSMITHKLINE-A0423723A

PATIENT
  Age: 60 Year
  Sex: Male

DRUGS (12)
  1. ADVAIR DISKUS 100/50 [Suspect]
     Dosage: 1PUFF TWICE PER DAY
     Route: 055
     Dates: start: 20030823, end: 20030827
  2. HUMULIN 70/30 [Concomitant]
  3. HUMULIN R [Concomitant]
  4. COREG [Concomitant]
  5. ALLEGRA [Concomitant]
  6. AMARYL [Concomitant]
  7. ENALAPRIL MALEATE [Concomitant]
  8. FLOMAX [Concomitant]
  9. ZAROXOLYN [Concomitant]
  10. FUROSEMIDE [Concomitant]
  11. ZOCOR [Concomitant]
  12. MOBIC [Concomitant]

REACTIONS (2)
  - DYSPNOEA [None]
  - PHARMACEUTICAL PRODUCT COMPLAINT [None]
